FAERS Safety Report 14607578 (Version 1)
Quarter: 2018Q1

REPORT INFORMATION
  Report Type: Report from Study
  Country: US (occurrence: US)
  Receive Date: 20180307
  Receipt Date: 20180307
  Transmission Date: 20180509
  Serious: Yes (Other)
  Sender: FDA-Public Use
  Company Number: US-EMD SERONO-E2B_90026159

PATIENT
  Sex: Female

DRUGS (1)
  1. REBIF [Suspect]
     Active Substance: INTERFERON BETA-1A
     Indication: MULTIPLE SCLEROSIS
     Route: 058
     Dates: start: 20171128

REACTIONS (5)
  - Spinal pain [Unknown]
  - Dehydration [Unknown]
  - Loss of consciousness [Unknown]
  - Injection site nodule [Not Recovered/Not Resolved]
  - Pyrexia [Unknown]
